FAERS Safety Report 9851344 (Version 2)
Quarter: 2014Q1

REPORT INFORMATION
  Report Type: Spontaneous
  Country: DE (occurrence: DE)
  Receive Date: 20140129
  Receipt Date: 20140228
  Transmission Date: 20141002
  Serious: Yes (Hospitalization)
  Sender: FDA-Public Use
  Company Number: DE-ROCHE-1340682

PATIENT
  Age: 60 Year
  Sex: Female
  Weight: 74 kg

DRUGS (5)
  1. ROACTEMRA [Suspect]
     Indication: RHEUMATOID ARTHRITIS
     Route: 042
     Dates: start: 20121123
  2. ROACTEMRA [Suspect]
     Route: 042
     Dates: start: 20130819
  3. ROACTEMRA [Suspect]
     Route: 042
     Dates: start: 20130920
  4. ROACTEMRA [Suspect]
     Route: 042
     Dates: start: 20131017
  5. ROACTEMRA [Suspect]
     Dosage: LAST DOSE: 12/DEC/2013
     Route: 042
     Dates: start: 20131114, end: 20131212

REACTIONS (2)
  - Malignant melanoma [Unknown]
  - Transaminases increased [Not Recovered/Not Resolved]
